FAERS Safety Report 19612056 (Version 11)
Quarter: 2022Q1

REPORT INFORMATION
  Report Type: Report from Study
  Country: GB (occurrence: GB)
  Receive Date: 20210726
  Receipt Date: 20220330
  Transmission Date: 20220423
  Serious: Yes (Hospitalization, Other)
  Sender: FDA-Public Use
  Company Number: NVSC2021GB163625

PATIENT
  Age: 41 Year
  Sex: Female

DRUGS (4)
  1. COSENTYX [Suspect]
     Active Substance: SECUKINUMAB
     Indication: Psoriasis
     Dosage: 150 MG, QMO
     Route: 058
     Dates: start: 20171017, end: 20190627
  2. COSENTYX [Suspect]
     Active Substance: SECUKINUMAB
     Indication: Ankylosing spondylitis
     Dosage: 150 MG, UNKNOWN
     Route: 058
     Dates: start: 20171221, end: 20190627
  3. COSENTYX [Suspect]
     Active Substance: SECUKINUMAB
     Dosage: 150 MG, UNKNOWN
     Route: 065
     Dates: start: 20191105, end: 20191205
  4. COSENTYX [Suspect]
     Active Substance: SECUKINUMAB
     Dosage: 150 MG, QMO
     Route: 058
     Dates: start: 20191205, end: 20210423

REACTIONS (13)
  - Fatigue [Recovered/Resolved]
  - Iridocyclitis [Recovered/Resolved]
  - Iritis [Recovered/Resolved]
  - Candida infection [Recovered/Resolved]
  - Ectropion of cervix [Unknown]
  - Ovarian cyst [Recovered/Resolved]
  - Adenomyosis [Unknown]
  - Menstruation irregular [Recovered/Resolved]
  - Headache [Not Recovered/Not Resolved]
  - Neck pain [Not Recovered/Not Resolved]
  - Pelvic pain [Recovered/Resolved]
  - Drug ineffective [Recovered/Resolved]
  - Vulvovaginal candidiasis [Unknown]

NARRATIVE: CASE EVENT DATE: 20180212
